FAERS Safety Report 7501403-9 (Version None)
Quarter: 2011Q2

REPORT INFORMATION
  Report Type: 
  Country: None (occurrence: None)
  Receive Date: 20110524
  Receipt Date: 20110516
  Transmission Date: 20111010
  Serious: Yes (Hospitalization, Other)
  Sender: FDA-Public Use
  Company Number: JP-B.I. PHARMACEUTICALS,INC./RIDGEFIELD-2011-BP-11155NB

PATIENT
  Sex: Male
  Weight: 62 kg

DRUGS (9)
  1. PRADAXA [Suspect]
     Indication: ATRIAL FIBRILLATION
     Dosage: 220 MG
     Route: 048
     Dates: start: 20110401, end: 20110416
  2. LASIX [Concomitant]
     Indication: CARDIAC FAILURE
     Dosage: 20 MG
     Route: 048
     Dates: start: 19900623
  3. SLOW-K [Concomitant]
     Indication: HYPOKALAEMIA
     Dosage: 600 MG
     Route: 048
     Dates: start: 19900623
  4. LAXOBERON [Suspect]
     Route: 048
     Dates: start: 19900623, end: 20110416
  5. CANDESARTAN CILEXETIL [Concomitant]
     Indication: HYPERTENSION
     Dosage: 4 MG
     Route: 048
     Dates: start: 19900623
  6. MUNOBAL [Concomitant]
     Indication: HYPERTENSION
     Dosage: 5 MG
     Route: 048
     Dates: start: 19900623
  7. PANALDINE [Concomitant]
     Indication: THROMBOSIS PROPHYLAXIS
     Dosage: 100 MG
     Route: 048
     Dates: start: 19900623
  8. DIGOXIN [Concomitant]
     Indication: ATRIAL FIBRILLATION
     Dosage: 0.125 MG
     Route: 048
     Dates: start: 19890623
  9. OINTMENT BASES [Concomitant]
     Route: 062

REACTIONS (9)
  - ANAEMIA [None]
  - FEMUR FRACTURE [None]
  - DIZZINESS [None]
  - FALL [None]
  - DIVERTICULUM INTESTINAL [None]
  - MELAENA [None]
  - GASTROINTESTINAL HAEMORRHAGE [None]
  - LEUKAEMIA [None]
  - COLONIC POLYP [None]
